FAERS Safety Report 14113451 (Version 1)
Quarter: 2017Q4

REPORT INFORMATION
  Report Type: Spontaneous
  Country: US (occurrence: US)
  Receive Date: 20171023
  Receipt Date: 20171023
  Transmission Date: 20180321
  Serious: No
  Sender: FDA-Public Use
  Company Number: US-TEVA-806329ACC

PATIENT
  Sex: Female

DRUGS (1)
  1. ACETAMINOPHEN W/OXYCODONE [Suspect]
     Active Substance: ACETAMINOPHEN\OXYCODONE HYDROCHLORIDE
     Indication: PAIN
     Dosage: DOSE STRENGTH: 10/325MG

REACTIONS (5)
  - Alopecia [Unknown]
  - Constipation [Unknown]
  - Product quality issue [Unknown]
  - Decreased appetite [Unknown]
  - Dry skin [Unknown]

NARRATIVE: CASE EVENT DATE: 201708
